FAERS Safety Report 8283236 (Version 5)
Quarter: 2012Q4

REPORT INFORMATION
  Report Type: 
  Country: US (occurrence: US)
  Receive Date: 20111209
  Receipt Date: 20121017
  Transmission Date: 20130627
  Serious: Yes (Other)
  Sender: FDA-Public Use
  Company Number: US-ASTRAZENECA-2011SE73123

PATIENT
  Age: 71 Year
  Sex: Female

DRUGS (5)
  1. PULMICORT FLEXHALER [Suspect]
     Route: 055
  2. ARIMIDEX [Suspect]
     Route: 048
  3. RHINOCORT AQUA [Suspect]
     Route: 045
  4. TAMOXIFEN [Suspect]
     Route: 048
  5. MAX AIR INHALER [Concomitant]

REACTIONS (19)
  - Breast cancer female [Unknown]
  - Neoplasm malignant [Unknown]
  - Recurrent cancer [Unknown]
  - Disease recurrence [Unknown]
  - Autoimmune disorder [Unknown]
  - Bronchitis [Unknown]
  - Chronic obstructive pulmonary disease [Unknown]
  - Blood pressure increased [Unknown]
  - Amnesia [Unknown]
  - Rhinitis [Unknown]
  - Malaise [Unknown]
  - Adverse drug reaction [Unknown]
  - Dyspnoea [Unknown]
  - Wheezing [Unknown]
  - Depression [Unknown]
  - Arthritis [Unknown]
  - Hot flush [Unknown]
  - Vomiting [Unknown]
  - Drug dose omission [Unknown]
